FAERS Safety Report 16501134 (Version 1)
Quarter: 2019Q3

REPORT INFORMATION
  Report Type: Spontaneous
  Country: US (occurrence: US)
  Receive Date: 20190701
  Receipt Date: 20190701
  Transmission Date: 20191004
  Serious: Yes (Other)
  Sender: FDA-Public Use
  Company Number: US-SA-2019SA175945

PATIENT

DRUGS (1)
  1. RENAGEL [Suspect]
     Active Substance: SEVELAMER HYDROCHLORIDE
     Indication: PHOSPHORUS METABOLISM DISORDER
     Dosage: 1 DF, BID
     Route: 048
     Dates: start: 2011

REACTIONS (1)
  - Choking [Unknown]
